FAERS Safety Report 18327469 (Version 1)
Quarter: 2020Q3

REPORT INFORMATION
  Report Type: Report from Study
  Country: CA (occurrence: CA)
  Receive Date: 20200929
  Receipt Date: 20200929
  Transmission Date: 20201103
  Serious: Yes (Hospitalization)
  Sender: FDA-Public Use
  Company Number: CA-PFIZER INC-2020374540

PATIENT
  Age: 33 Year
  Sex: Male

DRUGS (26)
  1. ENTYVIO [Suspect]
     Active Substance: VEDOLIZUMAB
     Indication: COLITIS ULCERATIVE
     Dosage: 300 MG
     Route: 042
  2. APO?PREDNISONE [Concomitant]
     Active Substance: PREDNISONE
     Dosage: 20 MG, 1X/DAY
  3. CALCIUM CARBONATE\CALCIUM CITRATE [Concomitant]
     Active Substance: CALCIUM CARBONATE\CALCIUM CITRATE
     Dosage: UNK UNK, 2X/DAY
  4. SALOFALK [MESALAZINE] [Concomitant]
     Active Substance: MESALAMINE
     Dosage: 1000 MG, 1X/DAY
  5. ACETAMINOPHEN;CODEINE PHOSPHATE [Concomitant]
     Active Substance: ACETAMINOPHEN\CODEINE PHOSPHATE
     Dosage: UNK, 3X/DAY
  6. ENTYVIO [Suspect]
     Active Substance: VEDOLIZUMAB
     Dosage: 300 MG
     Route: 042
  7. FOLIC ACID. [Concomitant]
     Active Substance: FOLIC ACID
     Dosage: UNK UNK, 1X/DAY
     Route: 048
  8. MEZAVANT [Concomitant]
     Active Substance: MESALAMINE
     Dosage: UNK, 1X/DAY
     Route: 048
  9. VITAMIN D NOS [Concomitant]
     Active Substance: VITAMIN D NOS
     Dosage: UNK, 1X/DAY
     Route: 048
  10. INFLIXIMAB [Concomitant]
     Active Substance: INFLIXIMAB
     Dosage: UNK (1 EVERY 8 WEEKS)
     Route: 042
  11. APO?AZATHIOPRINE [Concomitant]
     Active Substance: AZATHIOPRINE
     Dosage: 150 MG, 1X/DAY
  12. APO?PREDNISONE [Concomitant]
     Active Substance: PREDNISONE
     Dosage: 40 MG
     Route: 048
  13. MEZAVANT [Concomitant]
     Active Substance: MESALAMINE
     Dosage: 4.8 G, 1X/DAY
  14. METHOTREXATE SODIUM. [Suspect]
     Active Substance: METHOTREXATE SODIUM
     Dosage: UNK, WEEKLY
     Route: 048
  15. APO?AZATHIOPRINE [Concomitant]
     Active Substance: AZATHIOPRINE
     Dosage: UNK, 1X/DAY
  16. APO?PREDNISONE [Concomitant]
     Active Substance: PREDNISONE
     Dosage: UNK, 1X/DAY
  17. CORTIMENT [BUDESONIDE] [Concomitant]
     Active Substance: BUDESONIDE
     Dosage: 9 MG, 1X/DAY
  18. LOPERAMIDE [Concomitant]
     Active Substance: LOPERAMIDE
     Dosage: UNK UNK, 4X/DAY
     Route: 048
  19. CORTIFOAM [Concomitant]
     Active Substance: HYDROCORTISONE ACETATE
     Dosage: 9 MG, 1X/DAY
  20. VENTOLINE [SALBUTAMOL SULFATE] [Concomitant]
     Active Substance: ALBUTEROL SULFATE
     Dosage: 100 UG
     Route: 050
  21. INFLIXIMAB [Concomitant]
     Active Substance: INFLIXIMAB
     Dosage: 100 MG
  22. HYDROCORTISONE. [Concomitant]
     Active Substance: HYDROCORTISONE
     Dosage: 40 MG
  23. BETNESOL [BETAMETHASONE SODIUM PHOSPHATE] [Concomitant]
     Active Substance: BETAMETHASONE SODIUM PHOSPHATE
     Dosage: 100 ML
  24. PSYLLIUM HUSKS [Concomitant]
     Active Substance: PSYLLIUM HUSK
     Dosage: UNK, 1X/DAY
     Route: 048
  25. PSYLLIUM HUSKS [Concomitant]
     Active Substance: PSYLLIUM HUSK
     Dosage: UNK, 2X/DAY
  26. SALOFALK [MESALAZINE] [Concomitant]
     Active Substance: MESALAMINE
     Dosage: UNK, 1X/DAY

REACTIONS (5)
  - Alanine aminotransferase increased [Unknown]
  - Dyspnoea [Unknown]
  - Headache [Unknown]
  - Colitis ulcerative [Unknown]
  - Off label use [Unknown]
